FAERS Safety Report 25143052 (Version 1)
Quarter: 2025Q2

REPORT INFORMATION
  Report Type: Spontaneous
  Country: US (occurrence: None)
  Receive Date: 20250401
  Receipt Date: 20250401
  Transmission Date: 20250716
  Serious: Yes (Hospitalization, Other)
  Sender: NATCO PHARMA
  Company Number: US-NATCOUSA-2025-NATCOUSA-000271

PATIENT
  Age: 51 Year
  Sex: Male

DRUGS (1)
  1. EVEROLIMUS [Suspect]
     Active Substance: EVEROLIMUS
     Indication: Prophylaxis against transplant rejection
     Route: 065

REACTIONS (3)
  - Pericarditis constrictive [Unknown]
  - Serositis [Unknown]
  - Off label use [Unknown]
